FAERS Safety Report 14983919 (Version 1)
Quarter: 2018Q2

REPORT INFORMATION
  Report Type: Report from Study
  Country: FR (occurrence: FR)
  Receive Date: 20180607
  Receipt Date: 20180607
  Transmission Date: 20180711
  Serious: Yes (Other)
  Sender: FDA-Public Use
  Company Number: FR-VIIV HEALTHCARE LIMITED-FR2018GSK100503

PATIENT
  Age: 48 Year
  Sex: Female

DRUGS (11)
  1. PREZISTA [Concomitant]
     Active Substance: DARUNAVIR ETHANOLATE
     Indication: HIV INFECTION
     Dosage: UNK
  2. VIRAMUNE [Concomitant]
     Active Substance: NEVIRAPINE
     Dosage: UNK
     Dates: start: 20140408
  3. TRUVADA [Concomitant]
     Active Substance: EMTRICITABINE\TENOFOVIR DISOPROXIL FUMARATE
  4. EMTRIVA [Concomitant]
     Active Substance: EMTRICITABINE
  5. VIDEX [Concomitant]
     Active Substance: DIDANOSINE
  6. DOLUTEGRAVIR [Suspect]
     Active Substance: DOLUTEGRAVIR
     Indication: HIV INFECTION
     Dosage: 50 MG, QD
     Dates: start: 20160528, end: 20160704
  7. NORVIR [Concomitant]
     Active Substance: RITONAVIR
     Indication: HIV INFECTION
     Dosage: UNK
  8. COMBIVIR [Concomitant]
     Active Substance: LAMIVUDINE\ZIDOVUDINE
  9. VIREAD [Concomitant]
     Active Substance: TENOFOVIR DISOPROXIL FUMARATE
  10. SUSTIVA [Concomitant]
     Active Substance: EFAVIRENZ
  11. KIVEXA [Concomitant]
     Active Substance: ABACAVIR SULFATE\LAMIVUDINE
     Dosage: UNK
     Dates: start: 20140408

REACTIONS (2)
  - Drug interaction [Unknown]
  - Tuberculosis [Unknown]
